FAERS Safety Report 10542147 (Version 1)
Quarter: 2014Q4

REPORT INFORMATION
  Report Type: Spontaneous
  Country: IT (occurrence: IT)
  Receive Date: 20141024
  Receipt Date: 20141024
  Transmission Date: 20150529
  Serious: Yes (Life-Threatening)
  Sender: FDA-Public Use
  Company Number: IT-ASTRAZENECA-2014SE79456

PATIENT
  Age: 28291 Day
  Sex: Male
  Weight: 85 kg

DRUGS (9)
  1. EFEXOR (VENLAFAXINE) [Concomitant]
     Route: 048
     Dates: start: 20140101, end: 20140307
  2. PLAVIX [Interacting]
     Active Substance: CLOPIDOGREL BISULFATE
     Route: 048
     Dates: start: 20130605, end: 20140307
  3. BISOPROLOL [Concomitant]
     Active Substance: BISOPROLOL
     Route: 048
     Dates: start: 20130101, end: 20140307
  4. NORVASC (AMLODIPINE) [Concomitant]
     Indication: HYPERTENSION
     Route: 048
     Dates: start: 20120501, end: 20140307
  5. ANTRA [Suspect]
     Active Substance: OMEPRAZOLE
     Route: 048
     Dates: start: 20120501, end: 20140307
  6. ATORVASTATIN [Interacting]
     Active Substance: ATORVASTATIN
     Indication: ARTERIOSCLEROSIS
     Route: 048
     Dates: start: 20130101, end: 20140307
  7. NOOTROPIL (PIRACETAM) [Concomitant]
     Dosage: 3G/15 ML ORAL SOLUTION AND SOLUTION FOR INJECTION
     Dates: start: 20140101, end: 20140307
  8. CARDURA (DOXAZOSIN) [Concomitant]
     Indication: HYPERTENSION
     Route: 048
     Dates: start: 20120501, end: 20140307
  9. KEPPRA [Concomitant]
     Active Substance: LEVETIRACETAM
     Indication: EPILEPSY
     Dosage: 500 MG, 2 DF  FILM COATED TABLETS
     Route: 048
     Dates: start: 20120501, end: 20140307

REACTIONS (4)
  - Cerebrovascular accident [Recovered/Resolved with Sequelae]
  - Drug ineffective [Recovered/Resolved with Sequelae]
  - Drug prescribing error [Recovered/Resolved with Sequelae]
  - Drug interaction [Recovered/Resolved with Sequelae]

NARRATIVE: CASE EVENT DATE: 20140306
